FAERS Safety Report 4347864-8 (Version None)
Quarter: 2004Q2

REPORT INFORMATION
  Report Type: 
  Country: None (occurrence: None)
  Receive Date: 20040422
  Receipt Date: 20040406
  Transmission Date: 20050107
  Serious: Yes (Death, Other)
  Sender: FDA-Public Use
  Company Number: USA030332633

PATIENT
  Age: 38 Year
  Sex: Male
  Weight: 88 kg

DRUGS (3)
  1. ZYPREXA [Suspect]
     Dosage: 15 MG/DAY
     Dates: start: 20021201, end: 20030327
  2. NORVASC [Concomitant]
  3. ALDACTAZIDE [Concomitant]

REACTIONS (2)
  - CIRCULATORY COLLAPSE [None]
  - OVERDOSE [None]
